FAERS Safety Report 19497648 (Version 2)
Quarter: 2023Q2

REPORT INFORMATION
  Report Type: Spontaneous
  Country: US (occurrence: US)
  Receive Date: 20210706
  Receipt Date: 20230601
  Transmission Date: 20230721
  Serious: No
  Sender: FDA-Public Use
  Company Number: US-PFIZER INC-2021330750

PATIENT
  Age: 64 Year
  Sex: Male
  Weight: 62.14 kg

DRUGS (1)
  1. INLYTA [Suspect]
     Active Substance: AXITINIB
     Indication: Renal cell carcinoma
     Dosage: 5 MG, 2X/DAY (TAKE WHOLE WITH WATER, WITH OR WITHOUT FOOD)
     Route: 048
     Dates: start: 20210302

REACTIONS (4)
  - Neoplasm progression [Unknown]
  - Rash [Unknown]
  - Neuralgia [Unknown]
  - Lip pain [Unknown]
